FAERS Safety Report 21221943 (Version 1)
Quarter: 2022Q3

REPORT INFORMATION
  Report Type: Spontaneous
  Country: US (occurrence: None)
  Receive Date: 20220816
  Receipt Date: 20220816
  Transmission Date: 20221027
  Serious: No
  Sender: FDA-Public Use
  Company Number: None

PATIENT
  Sex: Female

DRUGS (1)
  1. ZARXIO [Suspect]
     Active Substance: FILGRASTIM-SNDZ
     Dosage: OTHER FREQUENCY : Q14DAYS;?
     Route: 058
     Dates: start: 202201

REACTIONS (4)
  - Injury associated with device [None]
  - Needle issue [None]
  - Device difficult to use [None]
  - Device defective [None]
